FAERS Safety Report 10067759 (Version 1)
Quarter: 2014Q2

REPORT INFORMATION
  Report Type: Spontaneous
  Country: US (occurrence: None)
  Receive Date: 20140407
  Receipt Date: 20140407
  Transmission Date: 20141212
  Serious: Yes (Hospitalization)
  Sender: FDA-Public Use
  Company Number: SYM-2014-19334

PATIENT
  Age: 10 Year
  Sex: Female

DRUGS (1)
  1. XENAZINE (12.5 MILLIGRAM, TABLET) (TETRABENAZINE) [Suspect]
     Indication: CHOREA
     Route: 048
     Dates: start: 20140123

REACTIONS (1)
  - Gastric disorder [None]
